FAERS Safety Report 16652169 (Version 1)
Quarter: 2019Q3

REPORT INFORMATION
  Report Type: Report from Study
  Country: PE (occurrence: PE)
  Receive Date: 20190731
  Receipt Date: 20190731
  Transmission Date: 20191004
  Serious: No
  Sender: FDA-Public Use
  Company Number: PE-JNJFOC-20190725117

PATIENT
  Age: 38 Year
  Sex: Male

DRUGS (4)
  1. STELARA [Suspect]
     Active Substance: USTEKINUMAB
     Dosage: 45 MG/0.5 ML
     Route: 058
     Dates: start: 20181106, end: 20181106
  2. STELARA [Suspect]
     Active Substance: USTEKINUMAB
     Dosage: 45 MG/0.5 ML
     Route: 058
     Dates: start: 20190129
  3. STELARA [Suspect]
     Active Substance: USTEKINUMAB
     Dosage: 45 MG/0.5 ML
     Route: 058
     Dates: start: 20190423
  4. STELARA [Suspect]
     Active Substance: USTEKINUMAB
     Indication: PSORIASIS
     Dosage: 45 MG ONE SINGLE DOSE WEEK 0 AND 45 MG ONE SINGLE DOSE WEEK 4 AND 45 MG ONCE EVERY 12 WEEKS
     Route: 058
     Dates: start: 20181012

REACTIONS (2)
  - Liver function test abnormal [Not Recovered/Not Resolved]
  - Bronchial disorder [Not Recovered/Not Resolved]

NARRATIVE: CASE EVENT DATE: 20190704
